FAERS Safety Report 4444448-8 (Version None)
Quarter: 2004Q3

REPORT INFORMATION
  Report Type: 
  Country: None (occurrence: None)
  Receive Date: 20040902
  Receipt Date: 20040816
  Transmission Date: 20050211
  Serious: Yes (Hospitalization, Other)
  Sender: FDA-Public Use
  Company Number: USA040875620

PATIENT
  Age: 49 Year
  Sex: Female
  Weight: 55 kg

DRUGS (9)
  1. FORTEO [Suspect]
     Indication: OSTEOPOROSIS
     Dosage: 20 UG/1 DAY
     Dates: start: 20031001
  2. DILANTIN (PHENYTOID) [Concomitant]
  3. SYNTHROID [Concomitant]
  4. PHENOBARBITAL TAB [Concomitant]
  5. CELEBREX [Concomitant]
  6. CALCIAUM CARBONATE + VITAMIN D [Concomitant]
  7. FEOSOL (FERROUS SULFATE) [Concomitant]
  8. OSTEO BI-FLEX [Concomitant]
  9. VITAMIN C AND E [Concomitant]

REACTIONS (4)
  - FALL [None]
  - HIP FRACTURE [None]
  - PHARMACEUTICAL PRODUCT COMPLAINT [None]
  - POST PROCEDURAL PAIN [None]
